FAERS Safety Report 19066582 (Version 2)
Quarter: 2021Q3

REPORT INFORMATION
  Report Type: Spontaneous
  Country: US (occurrence: US)
  Receive Date: 20210328
  Receipt Date: 20210712
  Transmission Date: 20211014
  Serious: Yes (Hospitalization)
  Sender: FDA-Public Use
  Company Number: US-TEVA-2021-US-1893723

PATIENT
  Age: 71 Year
  Sex: Male

DRUGS (8)
  1. QUETIAPINE. [Suspect]
     Active Substance: QUETIAPINE
     Indication: PARKINSON^S DISEASE PSYCHOSIS
     Dosage: 12.5 MILLIGRAM DAILY; INCREASED AFTER 1 WEEK TO 25 MG/D
     Route: 065
  2. QUETIAPINE. [Suspect]
     Active Substance: QUETIAPINE
     Dosage: 25 MILLIGRAM DAILY;
     Route: 065
  3. QUETIAPINE. [Suspect]
     Active Substance: QUETIAPINE
     Dosage: 75 MILLIGRAM DAILY; THEN TO 25 MG IN THE MORNING AND 50 MG IN THE EVENING
     Route: 065
  4. PIMAVANSERIN [Suspect]
     Active Substance: PIMAVANSERIN
     Indication: PARKINSON^S DISEASE PSYCHOSIS
     Dosage: 17 MILLIGRAM DAILY; OFF?LABEL DOSE
     Route: 065
     Dates: start: 201708
  5. CITALOPRAM [Concomitant]
     Active Substance: CITALOPRAM HYDROBROMIDE
     Indication: DEPRESSION
     Dosage: 20 MILLIGRAM DAILY;
     Route: 065
  6. CARBIDOPA/LEVODOPA [Suspect]
     Active Substance: CARBIDOPA\LEVODOPA
     Indication: PARKINSON^S DISEASE
     Dosage: 3 DOSAGE FORMS DAILY;
     Route: 065
  7. QUETIAPINE. [Suspect]
     Active Substance: QUETIAPINE
     Dosage: 50 MILLIGRAM DAILY; INCREASED TO 50 MG/D
     Route: 065
  8. PIMAVANSERIN [Suspect]
     Active Substance: PIMAVANSERIN
     Dosage: 34 MILLIGRAM DAILY; AFTER THE SECOND WEEK
     Route: 065
     Dates: start: 2017

REACTIONS (7)
  - Hallucination [Recovering/Resolving]
  - Off label use [Unknown]
  - Parkinson^s disease psychosis [Recovering/Resolving]
  - Sedation complication [Unknown]
  - Somnolence [Unknown]
  - Delirium [Recovering/Resolving]
  - Bradyphrenia [Unknown]
